FAERS Safety Report 8401257 (Version 2)
Quarter: 2012Q4

REPORT INFORMATION
  Report Type: 
  Country: US (occurrence: US)
  Receive Date: 20120210
  Receipt Date: 20121107
  Transmission Date: 20130627
  Serious: Yes (Other)
  Sender: FDA-Public Use
  Company Number: US-US-EMD SERONO, INC.-7111553

PATIENT
  Age: 37 None
  Sex: Female
  Weight: 68 kg

DRUGS (8)
  1. REBIF [Suspect]
     Indication: MULTIPLE SCLEROSIS
     Route: 058
     Dates: start: 20081203, end: 201203
  2. UNSPECIFIED MEDICATIONS [Concomitant]
     Indication: ALOPECIA
  3. IRON SUPPLEMENTS [Concomitant]
     Indication: ANAEMIA
  4. AMLODIPINE [Concomitant]
     Indication: HYPERTENSION
  5. METOPROLOL [Concomitant]
     Indication: HYPERTENSION
  6. SYMBICORT [Concomitant]
     Indication: ASTHMA
  7. BACLOFEN [Concomitant]
     Indication: MUSCLE SPASTICITY
  8. CYMBALTA [Concomitant]
     Indication: FIBROMYALGIA

REACTIONS (11)
  - Blood immunoglobulin A increased [Unknown]
  - Blood glucose increased [Recovered/Resolved]
  - Allergy to chemicals [Unknown]
  - Alopecia [Not Recovered/Not Resolved]
  - Vulvovaginal dryness [Unknown]
  - Multiple sclerosis relapse [Unknown]
  - Fatigue [Unknown]
  - Hypersensitivity [Recovered/Resolved]
  - Pain [Not Recovered/Not Resolved]
  - Injection site erythema [Not Recovered/Not Resolved]
  - Injection site bruising [Not Recovered/Not Resolved]
